FAERS Safety Report 12262227 (Version 1)
Quarter: 2016Q2

REPORT INFORMATION
  Report Type: Spontaneous
  Country: FI (occurrence: FI)
  Receive Date: 20160413
  Receipt Date: 20160413
  Transmission Date: 20160815
  Serious: Yes (Other)
  Sender: FDA-Public Use
  Company Number: FI-AMGEN-FINSP2016020834

PATIENT
  Age: 4 Year
  Sex: Female

DRUGS (3)
  1. ENBREL [Suspect]
     Active Substance: ETANERCEPT
     Dosage: AD 12.5 MG WEEKLY AS PER WEIGHT
     Route: 058
     Dates: start: 2014, end: 201501
  2. ENBREL [Suspect]
     Active Substance: ETANERCEPT
     Indication: JUVENILE IDIOPATHIC ARTHRITIS
     Dosage: 10 MG, WEEKLY
     Route: 058
     Dates: start: 20140220
  3. METHOTREXATE [Concomitant]
     Active Substance: METHOTREXATE
     Dosage: 7.5-10 MG, WEEKLY
     Route: 058

REACTIONS (2)
  - Iritis [Recovered/Resolved with Sequelae]
  - Uveitis [Unknown]

NARRATIVE: CASE EVENT DATE: 201402
